FAERS Safety Report 14952663 (Version 3)
Quarter: 2018Q3

REPORT INFORMATION
  Report Type: Report from Study
  Country: CA (occurrence: CA)
  Receive Date: 20180530
  Receipt Date: 20180710
  Transmission Date: 20181010
  Serious: Yes (Death, Hospitalization, Other)
  Sender: FDA-Public Use
  Company Number: CA-GLAXOSMITHKLINE-CA2018GSK094938

PATIENT
  Age: 86 Year
  Sex: Male

DRUGS (1)
  1. SALBUTAMOL SULPHATE [Suspect]
     Active Substance: ALBUTEROL SULFATE
     Indication: PRODUCT USED FOR UNKNOWN INDICATION
     Dosage: UNK

REACTIONS (8)
  - Pancreatic mass [Unknown]
  - Abdominal pain upper [Unknown]
  - Neoplasm malignant [Fatal]
  - Asthma [Unknown]
  - Drug effect incomplete [Unknown]
  - Blood count abnormal [Unknown]
  - Liver disorder [Unknown]
  - Intra-abdominal fluid collection [Unknown]

NARRATIVE: CASE EVENT DATE: 20180425
